FAERS Safety Report 17974277 (Version 2)
Quarter: 2020Q4

REPORT INFORMATION
  Report Type: Report from Study
  Country: AR (occurrence: AR)
  Receive Date: 20200702
  Receipt Date: 20201102
  Transmission Date: 20210113
  Serious: Yes (Other)
  Sender: FDA-Public Use
  Company Number: NVSC2019AR041481

PATIENT
  Age: 66 Year
  Sex: Female

DRUGS (4)
  1. COSENTYX [Suspect]
     Active Substance: SECUKINUMAB
     Indication: PSORIATIC ARTHROPATHY
     Dosage: 300 MG, QW
     Route: 065
     Dates: start: 20190910
  2. NOVOMIX [Concomitant]
     Active Substance: INSULIN ASPART
     Indication: DIABETES MELLITUS
     Dosage: 50 OT, QD
     Route: 058
  3. COSENTYX [Suspect]
     Active Substance: SECUKINUMAB
     Indication: PSORIASIS
     Dosage: 300 MG, QMO
     Route: 065
     Dates: end: 202003
  4. COSENTYX [Suspect]
     Active Substance: SECUKINUMAB
     Dosage: 300 MG, QMO
     Route: 058
     Dates: end: 20200601

REACTIONS (17)
  - Psoriatic arthropathy [Unknown]
  - Joint swelling [Unknown]
  - Pain [Recovering/Resolving]
  - Mobility decreased [Unknown]
  - Skin discolouration [Unknown]
  - Arthralgia [Unknown]
  - Product dose omission issue [Unknown]
  - Pain in extremity [Unknown]
  - Psoriasis [Not Recovered/Not Resolved]
  - Bone pain [Unknown]
  - COVID-19 [Unknown]
  - Gait inability [Not Recovered/Not Resolved]
  - Diabetes mellitus [Not Recovered/Not Resolved]
  - Back pain [Unknown]
  - Peripheral swelling [Unknown]
  - Skin lesion [Not Recovered/Not Resolved]
  - Drug ineffective [Not Recovered/Not Resolved]

NARRATIVE: CASE EVENT DATE: 20190910
